FAERS Safety Report 10160424 (Version 2)
Quarter: 2015Q1

REPORT INFORMATION
  Report Type: Spontaneous
  Country: TR (occurrence: TR)
  Receive Date: 20140508
  Receipt Date: 20150203
  Transmission Date: 20150720
  Serious: Yes (Hospitalization, Other)
  Sender: FDA-Public Use
  Company Number: TR-ASTRAZENECA-2014SE29949

PATIENT
  Age: 73 Year
  Sex: Female

DRUGS (2)
  1. OMEPRAZOLE. [Suspect]
     Active Substance: OMEPRAZOLE
     Indication: PEPTIC ULCER
     Route: 048
  2. LISINOPRIL AND HYDROCHLORIDE [Concomitant]
     Indication: HYPERTENSION

REACTIONS (5)
  - Hypomagnesaemia [Recovered/Resolved]
  - Generalised tonic-clonic seizure [Recovered/Resolved]
  - Paraesthesia [None]
  - Hyperparathyroidism secondary [Recovered/Resolved]
  - Hypocalcaemia [Recovered/Resolved]
